FAERS Safety Report 5902786-3 (Version None)
Quarter: 2008Q3

REPORT INFORMATION
  Report Type: 
  Country: None (occurrence: None)
  Receive Date: 20080929
  Receipt Date: 20080929
  Transmission Date: 20090109
  Serious: Yes (Disabling)
  Sender: FDA-Public Use
  Company Number: None

PATIENT
  Age: 55 Year
  Sex: Female
  Weight: 67.1324 kg

DRUGS (2)
  1. PROAIR HFA [Suspect]
     Indication: ASTHMA
     Dosage: 1-2 PUFFS 4 TIMES PER DAY PO
     Route: 048
     Dates: start: 20080310, end: 20080421
  2. PROAIR HFA [Suspect]
     Indication: CHRONIC OBSTRUCTIVE PULMONARY DISEASE
     Dosage: 1-2 PUFFS 4 TIMES PER DAY PO
     Route: 048
     Dates: start: 20080310, end: 20080421

REACTIONS (3)
  - DRUG INEFFECTIVE [None]
  - ECONOMIC PROBLEM [None]
  - PHARMACEUTICAL PRODUCT COMPLAINT [None]
